FAERS Safety Report 14098585 (Version 1)
Quarter: 2017Q4

REPORT INFORMATION
  Report Type: Report from Study
  Country: US (occurrence: US)
  Receive Date: 20171017
  Receipt Date: 20171017
  Transmission Date: 20180321
  Serious: Yes (Other)
  Sender: FDA-Public Use
  Company Number: US-GILEAD-2017-0299251

PATIENT
  Age: 51 Year
  Sex: Female

DRUGS (3)
  1. XARELTO [Concomitant]
     Active Substance: RIVAROXABAN
  2. AMBRISENTAN [Suspect]
     Active Substance: AMBRISENTAN
     Indication: PRODUCT USED FOR UNKNOWN INDICATION
     Dosage: 10 MG, QD
     Route: 065
     Dates: start: 20170615
  3. ADCIRCA [Concomitant]
     Active Substance: TADALAFIL

REACTIONS (3)
  - Dysphonia [Unknown]
  - Pyrexia [Unknown]
  - Kidney infection [Unknown]
